FAERS Safety Report 5536420-1 (Version None)
Quarter: 2007Q4

REPORT INFORMATION
  Report Type: 
  Country: None (occurrence: None)
  Receive Date: 20071204
  Receipt Date: 20071126
  Transmission Date: 20080405
  Serious: Yes (Other)
  Sender: FDA-Public Use
  Company Number: 2007-02865

PATIENT
  Age: 66 Year
  Sex: Female
  Weight: 53 kg

DRUGS (15)
  1. VELCADE [Suspect]
     Indication: MULTIPLE MYELOMA
     Dosage: 1.90 MG, INTRAVENOUS; 1.80 MG, INTRAVENOUS; 1.40 MG, INTRAVENOUS
     Route: 042
     Dates: start: 20070719, end: 20070729
  2. VELCADE [Suspect]
     Indication: MULTIPLE MYELOMA
     Dosage: 1.90 MG, INTRAVENOUS; 1.80 MG, INTRAVENOUS; 1.40 MG, INTRAVENOUS
     Route: 042
     Dates: start: 20070907, end: 20070910
  3. PREDNISOLONE [Concomitant]
  4. DEXAMETHASONE TAB [Concomitant]
  5. FAMOTIDINE [Concomitant]
  6. ASPIRIN [Concomitant]
  7. RISEDRONATE SODIUM [Concomitant]
  8. BAKTAR (SULFAMETHOXAZOLE, TRIMETHOPRIM) TABLET [Concomitant]
  9. LOXOPROFEN (LOXOPROFEN) [Concomitant]
  10. NASEA (RAMOSETRON HYDROCHLORIDE) [Concomitant]
  11. METHYCOBAL (MECOBALAMIN) [Concomitant]
  12. VALTREX [Concomitant]
  13. UNASYN ORAL [Concomitant]
  14. LASIX [Concomitant]
  15. PLATELETS [Concomitant]

REACTIONS (22)
  - ACQUIRED DIAPHRAGMATIC EVENTRATION [None]
  - ASCITES [None]
  - ATELECTASIS [None]
  - CONSTIPATION [None]
  - ELECTROLYTE IMBALANCE [None]
  - ENTEROBACTER INFECTION [None]
  - ENTEROBACTER SEPSIS [None]
  - HERPES ZOSTER [None]
  - HYPOKALAEMIA [None]
  - HYPONATRAEMIA [None]
  - LUMBAR VERTEBRAL FRACTURE [None]
  - LYMPHADENOPATHY [None]
  - MULTIPLE MYELOMA [None]
  - MYCOPLASMA INFECTION [None]
  - NASOPHARYNGITIS [None]
  - NAUSEA [None]
  - NEPHROLITHIASIS [None]
  - NEUROPATHY PERIPHERAL [None]
  - OSTEOSCLEROSIS [None]
  - PLATELET COUNT DECREASED [None]
  - PLEURAL EFFUSION [None]
  - PNEUMONIA [None]
